FAERS Safety Report 7762926-0 (Version None)
Quarter: 2011Q3

REPORT INFORMATION
  Report Type: 
  Country: None (occurrence: None)
  Receive Date: 20110920
  Receipt Date: 20110915
  Transmission Date: 20111222
  Serious: Yes (Death)
  Sender: FDA-Public Use
  Company Number: PHHY2011DK82573

PATIENT
  Sex: Female

DRUGS (1)
  1. METFORMIN HCL [Suspect]
     Indication: INFERTILITY
     Dosage: MATERNAL DOSE: 500 MG TID
     Route: 064

REACTIONS (6)
  - PULMONARY HYPOPLASIA [None]
  - DIAPHRAGMATIC HERNIA [None]
  - MATERNAL EXPOSURE DURING PREGNANCY [None]
  - STILLBIRTH [None]
  - PREMATURE SEPARATION OF PLACENTA [None]
  - HEPATIC STEATOSIS [None]
